FAERS Safety Report 10178339 (Version 2)
Quarter: 2014Q2

REPORT INFORMATION
  Report Type: Spontaneous
  Country: CA (occurrence: CA)
  Receive Date: 20140519
  Receipt Date: 20140528
  Transmission Date: 20141212
  Serious: Yes (Other)
  Sender: FDA-Public Use
  Company Number: CA-AMGEN-CANSP2014035929

PATIENT
  Age: 58 Year
  Sex: Male

DRUGS (7)
  1. ENBREL [Suspect]
     Indication: PSORIASIS
     Dosage: 50 MG, 2 TIMES/WK
     Route: 058
     Dates: start: 20110809
  2. GABAPENTIN [Concomitant]
     Dosage: 300 MG, BID
  3. PANTOPRAZOLE [Concomitant]
     Dosage: UNK
  4. VIT B12 [Concomitant]
     Dosage: UNK
  5. VITAMIN B6 [Concomitant]
     Dosage: UNK
  6. VITAMIN B1 [Concomitant]
     Dosage: UNK
  7. CO ALENDRONATE [Concomitant]
     Dosage: 70 MG, QD

REACTIONS (9)
  - Spinal cord disorder [Unknown]
  - Balance disorder [Unknown]
  - Nerve injury [Unknown]
  - Arthralgia [Unknown]
  - Fall [Unknown]
  - Hypoaesthesia [Unknown]
  - Contusion [Unknown]
  - Psoriasis [Not Recovered/Not Resolved]
  - Injection site reaction [Unknown]
